FAERS Safety Report 15555000 (Version 1)
Quarter: 2018Q4

REPORT INFORMATION
  Report Type: Spontaneous
  Country: US (occurrence: US)
  Receive Date: 20181022
  Receipt Date: 20181022
  Transmission Date: 20190205
  Serious: No
  Sender: FDA-Public Use
  Company Number: None

PATIENT
  Sex: Male

DRUGS (1)
  1. ENBREL [Suspect]
     Active Substance: ETANERCEPT
     Indication: PSORIASIS
     Dosage: INJECT 50MG SQ ONCE A MONTH MG SUBCUTANEOUSLY TWO TIMES A WEEK 72-96 HOURS APART
     Route: 058
     Dates: start: 201707

REACTIONS (2)
  - Ligament sprain [None]
  - Nasopharyngitis [None]
